FAERS Safety Report 6350417-3 (Version None)
Quarter: 2009Q3

REPORT INFORMATION
  Report Type: 
  Country: None (occurrence: None)
  Receive Date: 20090911
  Receipt Date: 20090622
  Transmission Date: 20100115
  Serious: No
  Sender: FDA-Public Use
  Company Number: US-ABBOTT-07P-163-0359487-00

PATIENT
  Sex: Female
  Weight: 87.622 kg

DRUGS (8)
  1. HUMIRA [Suspect]
     Indication: PSORIATIC ARTHROPATHY
     Route: 058
     Dates: start: 20070205
  2. ZOCOR [Concomitant]
     Indication: BLOOD CHOLESTEROL
     Route: 048
  3. ALENDRONATE SODIUM [Concomitant]
     Indication: OSTEOPOROSIS PROPHYLAXIS
     Route: 048
  4. TOPROL-XL [Concomitant]
     Indication: TACHYCARDIA
     Route: 048
  5. LEVOTHYROXINE SODIUM [Concomitant]
     Indication: THYROID DISORDER
     Route: 048
  6. FOLIC ACID [Concomitant]
     Indication: VITAMIN SUPPLEMENTATION
     Route: 048
  7. VOLTAREN [Concomitant]
     Indication: PSORIATIC ARTHROPATHY
     Route: 048
  8. METHOTREXATE [Concomitant]
     Indication: PSORIATIC ARTHROPATHY
     Route: 030

REACTIONS (1)
  - INCORRECT DOSE ADMINISTERED [None]
